FAERS Safety Report 9685713 (Version 2)
Quarter: 2013Q4

REPORT INFORMATION
  Report Type: Spontaneous
  Country: US (occurrence: US)
  Receive Date: 20131113
  Receipt Date: 20131213
  Transmission Date: 20140711
  Serious: No
  Sender: FDA-Public Use
  Company Number: US-PFIZER INC-2013319883

PATIENT
  Age: 77 Year
  Sex: Male

DRUGS (1)
  1. SUTENT [Suspect]
     Indication: RENAL CELL CARCINOMA
     Dosage: 375 MG, DAILY
     Route: 048
     Dates: start: 20110922, end: 20130604

REACTIONS (2)
  - Disease progression [Unknown]
  - Renal cell carcinoma [Unknown]
